FAERS Safety Report 8469344-0 (Version None)
Quarter: 2012Q2

REPORT INFORMATION
  Report Type: 
  Country: None (occurrence: None)
  Receive Date: 20120626
  Receipt Date: 20120620
  Transmission Date: 20120825
  Serious: Yes (Other)
  Sender: FDA-Public Use
  Company Number: US-ROCHE-1049980

PATIENT
  Sex: Female
  Weight: 90.346 kg

DRUGS (1)
  1. XELODA [Suspect]
     Indication: BREAST CANCER METASTATIC
     Dosage: 2 WEEKS ON, ONE WEEK OFF
     Route: 048
     Dates: start: 20120309, end: 20120601

REACTIONS (6)
  - NAUSEA [None]
  - FATIGUE [None]
  - TUMOUR MARKER INCREASED [None]
  - TENDERNESS [None]
  - BLISTER [None]
  - SKIN EXFOLIATION [None]
